FAERS Safety Report 25988589 (Version 2)
Quarter: 2025Q4

REPORT INFORMATION
  Report Type: Spontaneous
  Country: CA (occurrence: None)
  Receive Date: 20251103
  Receipt Date: 20251105
  Transmission Date: 20260118
  Serious: Yes (Other)
  Sender: ORION
  Company Number: CA-PFIZER INC-202500213659

PATIENT
  Age: 22 Year
  Sex: Male

DRUGS (3)
  1. METHOTREXATE [Suspect]
     Active Substance: METHOTREXATE
     Indication: Psoriatic arthropathy
  2. METHOTREXATE [Suspect]
     Active Substance: METHOTREXATE
     Dates: start: 202507
  3. SULFASALAZINE [Concomitant]
     Active Substance: SULFASALAZINE
     Indication: Psoriatic arthropathy
     Dosage: ONGOING
     Dates: start: 202406

REACTIONS (3)
  - Joint effusion [Not Recovered/Not Resolved]
  - Psoriatic arthropathy [Not Recovered/Not Resolved]
  - Synovitis [Unknown]

NARRATIVE: CASE EVENT DATE: 20240601
